FAERS Safety Report 26000813 (Version 1)
Quarter: 2025Q4

REPORT INFORMATION
  Report Type: Spontaneous
  Country: US (occurrence: US)
  Receive Date: 20251105
  Receipt Date: 20251105
  Transmission Date: 20260118
  Serious: Yes (Other)
  Sender: ANI
  Company Number: US-ANIPHARMA-2025-US-042525

PATIENT
  Age: 52 Year
  Sex: Male
  Weight: 95.71 kg

DRUGS (4)
  1. CORTICOTROPIN [Suspect]
     Active Substance: CORTICOTROPIN
     Indication: Arthritis
     Dosage: 80 UNITS TWICE WEEKLY, THEN 80 UNITS ONCE WEEKLY.
     Route: 058
     Dates: start: 20250401
  2. AMLODIPINE [Concomitant]
     Active Substance: AMLODIPINE BESYLATE
  3. PREDNISONE [Concomitant]
     Active Substance: PREDNISONE
  4. METHOTREXATE [Concomitant]
     Active Substance: METHOTREXATE

REACTIONS (4)
  - Malaise [Unknown]
  - Blood pressure increased [Unknown]
  - Condition aggravated [Unknown]
  - Contraindicated product administered [Not Recovered/Not Resolved]
